FAERS Safety Report 4534360-8 (Version None)
Quarter: 2004Q4

REPORT INFORMATION
  Report Type: 
  Country: None (occurrence: None)
  Receive Date: 20041214
  Receipt Date: 20040820
  Transmission Date: 20050328
  Serious: No
  Sender: FDA-Public Use
  Company Number: USA040876130

PATIENT
  Age: 64 Year
  Sex: Male
  Weight: 114 kg

DRUGS (2)
  1. CIALIS [Suspect]
     Indication: ERECTILE DYSFUNCTION
     Dosage: 20 MG
     Dates: start: 20040201, end: 20040601
  2. TOPROL-XL [Concomitant]

REACTIONS (3)
  - DRUG INEFFECTIVE [None]
  - SENSORY DISTURBANCE [None]
  - THERAPEUTIC RESPONSE DECREASED [None]
